FAERS Safety Report 23217984 (Version 1)
Quarter: 2023Q4

REPORT INFORMATION
  Report Type: Spontaneous
  Country: KR (occurrence: KR)
  Receive Date: 20231122
  Receipt Date: 20231122
  Transmission Date: 20240110
  Serious: Yes (Other)
  Sender: FDA-Public Use
  Company Number: KR-VALIDUS PHARMACEUTICALS LLC-KR-VDP-2023-018386

PATIENT

DRUGS (1)
  1. LASIX [Suspect]
     Active Substance: FUROSEMIDE
     Indication: Hepatic neoplasm
     Dosage: 2 DF, QD
     Route: 048
     Dates: start: 20210407, end: 20210413

REACTIONS (4)
  - Depressed level of consciousness [Recovering/Resolving]
  - Weight decreased [Recovering/Resolving]
  - Hyponatraemia [Recovering/Resolving]
  - Product use in unapproved indication [Unknown]

NARRATIVE: CASE EVENT DATE: 20210407
